FAERS Safety Report 26063078 (Version 1)
Quarter: 2025Q4

REPORT INFORMATION
  Report Type: Spontaneous
  Country: US (occurrence: None)
  Receive Date: 20251118
  Receipt Date: 20251118
  Transmission Date: 20260118
  Serious: Yes (Life-Threatening, Hospitalization)
  Sender: FDA-CTU
  Company Number: None

PATIENT
  Age: 63 Year
  Sex: Female
  Weight: 117.9 kg

DRUGS (2)
  1. CEFTRIAXONE [Suspect]
     Active Substance: CEFTRIAXONE
     Indication: Skin infection
     Route: 042
     Dates: start: 20251105
  2. VANCOMYCIN [Concomitant]
     Active Substance: VANCOMYCIN
     Dates: start: 20251105

REACTIONS (5)
  - Dyspnoea [None]
  - Flushing [None]
  - Pulmonary oedema [None]
  - Product deposit [None]
  - Product preparation issue [None]

NARRATIVE: CASE EVENT DATE: 20251105
